FAERS Safety Report 7074242-3 (Version None)
Quarter: 2010Q4

REPORT INFORMATION
  Report Type: 
  Country: None (occurrence: None)
  Receive Date: 20101029
  Receipt Date: 20101021
  Transmission Date: 20110411
  Serious: Yes (Other)
  Sender: FDA-Public Use
  Company Number: GB-ABBOTT-10P-167-0680249-00

PATIENT
  Sex: Female

DRUGS (1)
  1. HUMIRA [Suspect]
     Indication: PSORIATIC ARTHROPATHY
     Route: 058
     Dates: start: 20100801, end: 20101001

REACTIONS (15)
  - ABDOMINAL DISCOMFORT [None]
  - ABDOMINAL PAIN UPPER [None]
  - CANDIDIASIS [None]
  - CONTUSION [None]
  - DECREASED APPETITE [None]
  - EAR INFECTION [None]
  - ECZEMA [None]
  - HEADACHE [None]
  - LIBIDO DECREASED [None]
  - LOSS OF LIBIDO [None]
  - MOUTH ULCERATION [None]
  - PAIN IN JAW [None]
  - PSORIASIS [None]
  - SKIN EXFOLIATION [None]
  - VAGINAL HAEMORRHAGE [None]
